FAERS Safety Report 13643446 (Version 3)
Quarter: 2017Q4

REPORT INFORMATION
  Report Type: Spontaneous
  Country: US (occurrence: US)
  Receive Date: 20170612
  Receipt Date: 20171115
  Transmission Date: 20180320
  Serious: Yes (Hospitalization)
  Sender: FDA-Public Use
  Company Number: US-PFIZER INC-2016220083

PATIENT
  Age: 70 Year
  Sex: Female
  Weight: 62 kg

DRUGS (58)
  1. RAPAMUNE [Suspect]
     Active Substance: SIROLIMUS
     Dosage: 20 MG, ALTERNATE DAY (MWF])
  2. MAG - OX [Concomitant]
     Dosage: UNK
     Dates: start: 2002
  3. ASPIRIN. [Concomitant]
     Active Substance: ASPIRIN
     Indication: ANTICOAGULANT THERAPY
     Dosage: 81 MG, DAILY(TAKE 1 PILL AT 9 AM)
     Route: 048
  4. GLUCOSAMINE/ CHONDROITIN [Concomitant]
     Indication: SUPPLEMENTATION THERAPY
     Dosage: 1 DF, 2X/DAY(1 CAPSULE TWICE A DAY/ TAKE 1 PILL AT 9 AM + 9 PM )
     Route: 048
  5. LANTUS [Concomitant]
     Active Substance: INSULIN GLARGINE
     Dosage: 30 IU, 1X/DAY(30 UNIT(S) AT 9 PM )
     Route: 058
  6. PROAIR HFA [Concomitant]
     Active Substance: ALBUTEROL SULFATE
     Indication: DYSPNOEA
     Dosage: 2 DF, AS NEEDED (2 EVERY 4 HOURS AS NEEDED INHALE (PUFFS)
     Route: 045
  7. LIPITOR [Concomitant]
     Active Substance: ATORVASTATIN CALCIUM
     Indication: BLOOD CHOLESTEROL
     Dosage: 40 MG, 1X/DAY(AT BEDTIME/ 1 PILL AT 9 PM )
     Route: 048
  8. LIPITOR [Concomitant]
     Active Substance: ATORVASTATIN CALCIUM
     Dosage: UNK
     Dates: start: 2002
  9. REGLAN [Concomitant]
     Active Substance: METOCLOPRAMIDE HYDROCHLORIDE
     Indication: ABDOMINAL DISCOMFORT
     Dosage: 10 MG, 2X/DAY(TAKE 1 PILL AT 9 AM AND 5 PM)
     Route: 048
  10. ZITHROMAX [Concomitant]
     Active Substance: AZITHROMYCIN DIHYDRATE
     Dosage: UNK
     Dates: start: 2002
  11. CALTRATE [Concomitant]
     Active Substance: CALCIUM CARBONATE
     Indication: SUPPLEMENTATION THERAPY
     Dosage: 1 DF, 2X/DAY (CALCIUM 600 MG/ VITAMIN D)
     Route: 048
  12. COREG [Concomitant]
     Active Substance: CARVEDILOL
     Indication: CARDIAC DISORDER
     Dosage: 6.25 MG, 2X/DAY(TAKE 1 PILL AT 9AM + 9 PM)
     Route: 048
  13. IMDUR [Concomitant]
     Active Substance: ISOSORBIDE MONONITRATE
     Indication: CARDIAC DISORDER
     Dosage: 60 MG, DAILY(TAKE 1 PILL AT 9 AM)
     Route: 048
  14. LOVAZA [Concomitant]
     Active Substance: OMEGA-3-ACID ETHYL ESTERS
     Indication: BLOOD TRIGLYCERIDES ABNORMAL
     Dosage: 2 G, 2X/DAY(1GM/2 CAPSULE(S) TWICE A DAY/ TAKE 2 PILLS AT 9 AM + 9 PM)
     Route: 048
  15. RAPAMUNE [Suspect]
     Active Substance: SIROLIMUS
     Indication: IMMUNE SYSTEM DISORDER
     Dosage: 1 MG, ALTERNATE DAY (1MG TABLET, 1 EVERY SUNDAY, TUESDAY, THURSDAY AND SATURDAY)
     Route: 048
  16. RAPAMUNE [Suspect]
     Active Substance: SIROLIMUS
     Indication: LUNG TRANSPLANT
     Dosage: 2 MG ALTERNATE DAY (1 MG TABLETS, 2 EVERY MONDAY, WEDNESDAY, AND FRIDAY)
     Route: 048
  17. PROGRAF [Concomitant]
     Active Substance: TACROLIMUS\TACROLIMUS ANHYDROUS
     Indication: TRANSPLANT REJECTION
  18. NYSTATIN. [Concomitant]
     Active Substance: NYSTATIN
     Indication: ANTIFUNGAL TREATMENT
     Dosage: 15 ML, 2X/DAY(SWISH AND SWALLOW)
     Route: 048
  19. CALTRATE [Concomitant]
     Active Substance: CALCIUM CARBONATE
     Dosage: UNK
     Dates: start: 2002
  20. SEPTRA [Concomitant]
     Active Substance: SULFAMETHOXAZOLE\TRIMETHOPRIM
     Indication: ANTIBIOTIC THERAPY
     Dosage: 400 MG, ALTERNATE DAY (1 PILL MONDAY, WEDNESDAY, AND FRIDAY)
     Route: 048
     Dates: start: 2003
  21. LISINOPRIL. [Concomitant]
     Active Substance: LISINOPRIL
     Indication: BLOOD PRESSURE ABNORMAL
     Dosage: 2.5 MG, DAILY(TAKE 1/2 PILL AT 9 AM)
     Route: 048
  22. LISINOPRIL. [Concomitant]
     Active Substance: LISINOPRIL
     Dosage: UNK
     Dates: start: 2002
  23. PROTONIX [Concomitant]
     Active Substance: PANTOPRAZOLE SODIUM
     Indication: ABDOMINAL DISCOMFORT
     Dosage: 40 MG, DAILY(TAKE 1 PILL AT 9 AM)
     Route: 048
  24. SPIRIVA [Concomitant]
     Active Substance: TIOTROPIUM BROMIDE MONOHYDRATE
     Indication: DYSPNOEA
     Dosage: 1 DF, DAILY(1 INHALATION CAPSULE DAILY INHALATION)
     Route: 055
  25. ALDACTONE [Concomitant]
     Active Substance: SPIRONOLACTONE
     Indication: SWELLING
     Dosage: 25 MG, DAILY(TAKE 1 PILL 9 AM)
     Route: 048
  26. ZOLOFT [Concomitant]
     Active Substance: SERTRALINE HYDROCHLORIDE
     Dosage: UNK
     Dates: start: 2017
  27. LANTUS [Concomitant]
     Active Substance: INSULIN GLARGINE
     Dosage: UNK
     Dates: start: 2002
  28. ADVAIR HFA [Concomitant]
     Active Substance: FLUTICASONE PROPIONATE\SALMETEROL XINAFOATE
     Dosage: UNK
     Dates: start: 2002
  29. FOLATE [Concomitant]
     Active Substance: FOLATE SODIUM
     Indication: SUPPLEMENTATION THERAPY
     Dosage: 1 MG, DAILY(TAKE 1 PILL AT 9 AM)
     Route: 048
  30. ASPIRIN. [Concomitant]
     Active Substance: ASPIRIN
     Dosage: UNK
     Dates: start: 2002
  31. ALDACTONE [Concomitant]
     Active Substance: SPIRONOLACTONE
     Dosage: UNK
     Dates: start: 2013
  32. BRILINTA [Concomitant]
     Active Substance: TICAGRELOR
     Indication: ANTICOAGULANT THERAPY
     Dosage: 90 MG, 2X/DAY(TAKE 1 PILL AT 9 AM + 9 PM)
     Route: 048
  33. NOVOLOG [Concomitant]
     Active Substance: INSULIN ASPART
     Dosage: UNK
     Dates: start: 2002
  34. MAG - OX [Concomitant]
     Indication: SUPPLEMENTATION THERAPY
     Dosage: 400 MG, 2X/DAY(TAKE 1 PILL AT 9 AM + 9 PM)
     Route: 048
  35. IMDUR [Concomitant]
     Active Substance: ISOSORBIDE MONONITRATE
     Dosage: UNK
  36. GLUCOSAMINE/ CHONDROITIN [Concomitant]
     Dosage: UNK
     Dates: start: 2012
  37. LASIX [Concomitant]
     Active Substance: FUROSEMIDE
     Dosage: UNK
     Dates: start: 2002
  38. FLONASE [Concomitant]
     Active Substance: FLUTICASONE PROPIONATE
     Indication: HYPERSENSITIVITY
     Dosage: 2 DF, AS NEEDED (50 MCG/SPRAY, 2 SPRAY(S) )
     Route: 045
  39. SEPTRA [Concomitant]
     Active Substance: SULFAMETHOXAZOLE\TRIMETHOPRIM
     Indication: INFECTION
     Dosage: UNK
     Dates: start: 2002
  40. PROTONIX [Concomitant]
     Active Substance: PANTOPRAZOLE SODIUM
     Dosage: UNK
     Dates: start: 2002
  41. ZITHROMAX [Concomitant]
     Active Substance: AZITHROMYCIN DIHYDRATE
     Indication: INFECTION
     Dosage: 250 MG, ALTERNATE DAY (EVERY MON WED FRI)
     Route: 048
     Dates: start: 2003
  42. SPIRIVA [Concomitant]
     Active Substance: TIOTROPIUM BROMIDE MONOHYDRATE
     Dosage: UNK
     Dates: start: 2002
  43. BRILINTA [Concomitant]
     Active Substance: TICAGRELOR
     Indication: CARDIAC ARREST
     Dosage: UNK
     Dates: start: 2014
  44. LOVAZA [Concomitant]
     Active Substance: OMEGA-3-ACID ETHYL ESTERS
     Dosage: UNK
     Dates: start: 2014
  45. ZOLOFT [Concomitant]
     Active Substance: SERTRALINE HYDROCHLORIDE
     Indication: DEPRESSION
     Dosage: 50 MG, DAILY((TAKE 1 PILL AT 9 AM)
     Route: 048
  46. LASIX [Concomitant]
     Active Substance: FUROSEMIDE
     Indication: SWELLING
     Dosage: 40 MG, DAILY(TAKE 1 PILL AT 9 AM)
     Route: 048
  47. ADVAIR HFA [Concomitant]
     Active Substance: FLUTICASONE PROPIONATE\SALMETEROL XINAFOATE
     Dosage: 1 DF, 2X/DAY(1 PUFFS TWICE A DAY INHALATION, [FLUTICASONE 250 MCG]/ [SALMETEROL 50 MCG]
     Route: 055
  48. RAPAMUNE [Suspect]
     Active Substance: SIROLIMUS
     Dosage: 10 MG, ALTERNATE DAY ([TTSS])
     Dates: start: 2014
  49. PREDNISOLONE. [Concomitant]
     Active Substance: PREDNISOLONE
     Indication: IMMUNE SYSTEM DISORDER
     Dosage: 7.5 MG, DAILY(TAKE 1 1/2 PILLS AT 9 AM)
     Route: 048
  50. PREDNISOLONE. [Concomitant]
     Active Substance: PREDNISOLONE
     Dosage: UNK
     Dates: start: 2002
  51. PROGRAF [Concomitant]
     Active Substance: TACROLIMUS\TACROLIMUS ANHYDROUS
     Indication: IMMUNE SYSTEM DISORDER
     Dosage: 1 MG, 1X/DAY (1 PILL AT 9 AM)
     Route: 048
     Dates: start: 2002
  52. NYSTATIN. [Concomitant]
     Active Substance: NYSTATIN
     Dosage: UNK
     Dates: start: 2002
  53. REGLAN [Concomitant]
     Active Substance: METOCLOPRAMIDE HYDROCHLORIDE
     Dosage: UNK
     Dates: start: 2002
  54. FOLATE [Concomitant]
     Active Substance: FOLATE SODIUM
     Dosage: UNK
     Dates: start: 2002
  55. COREG [Concomitant]
     Active Substance: CARVEDILOL
     Dosage: UNK
     Dates: start: 2013
  56. NOVOLOG [Concomitant]
     Active Substance: INSULIN ASPART
     Indication: BLOOD GLUCOSE ABNORMAL
     Dosage: 10 IU, UNK(10 UNIT(S) WITH MEALS)
     Route: 058
  57. PROAIR HFA [Concomitant]
     Active Substance: ALBUTEROL SULFATE
     Indication: DYSPNOEA
     Dosage: 2 PUFFS AS NEEDED
     Route: 055
  58. INFLUENZA [Concomitant]
     Active Substance: INFLUENZA VIRUS VACCINE
     Indication: IMMUNISATION
     Dosage: UNK
     Dates: start: 20170906, end: 20170906

REACTIONS (9)
  - Laceration [Recovered/Resolved]
  - Nausea [Recovered/Resolved]
  - Musculoskeletal pain [Recovered/Resolved]
  - Accident [Recovered/Resolved]
  - Product use in unapproved indication [Recovered/Resolved]
  - Dizziness [Recovered/Resolved]
  - Contusion [Recovered/Resolved]
  - Vomiting [Recovered/Resolved]
  - Concussion [Recovered/Resolved]

NARRATIVE: CASE EVENT DATE: 20170524
